FAERS Safety Report 15221214 (Version 1)
Quarter: 2018Q3

REPORT INFORMATION
  Report Type: Spontaneous
  Country: US (occurrence: US)
  Receive Date: 20180731
  Receipt Date: 20180731
  Transmission Date: 20181010
  Serious: No
  Sender: FDA-Public Use
  Company Number: US-SA-2018SA206595

PATIENT
  Sex: Male

DRUGS (19)
  1. TARCEVA [Concomitant]
     Active Substance: ERLOTINIB HYDROCHLORIDE
  2. ISENTRESS [Concomitant]
     Active Substance: RALTEGRAVIR POTASSIUM
  3. LEVEMIR [Concomitant]
     Active Substance: INSULIN DETEMIR
  4. PRAZOSIN HCL [Concomitant]
     Active Substance: PRAZOSIN HYDROCHLORIDE
  5. ARIPIPRAZOLE. [Concomitant]
     Active Substance: ARIPIPRAZOLE
  6. MIRTAZAPINE. [Concomitant]
     Active Substance: MIRTAZAPINE
  7. VALACYCLOVIR HCL [Concomitant]
     Active Substance: VALACYCLOVIR HYDROCHLORIDE
  8. AUBAGIO [Suspect]
     Active Substance: TERIFLUNOMIDE
     Indication: MULTIPLE SCLEROSIS
     Dosage: 7 MG, QD
     Route: 048
     Dates: start: 201705
  9. BACLOFEN. [Concomitant]
     Active Substance: BACLOFEN
  10. DUTASTERIDE ACCORD [Concomitant]
  11. LEVOFLOXACIN 1 A PHARMA [Concomitant]
     Active Substance: LEVOFLOXACIN
  12. PIOGLITAZONE. [Concomitant]
     Active Substance: PIOGLITAZONE
  13. RISPERDAL [Concomitant]
     Active Substance: RISPERIDONE
  14. LUNESTA [Concomitant]
     Active Substance: ESZOPICLONE
  15. METFORMIN [Concomitant]
     Active Substance: METFORMIN HYDROCHLORIDE
  16. TRAMADOL HYDROCHLORIDE. [Concomitant]
     Active Substance: TRAMADOL HYDROCHLORIDE
  17. DESCOVY [Concomitant]
     Active Substance: EMTRICITABINE\TENOFOVIR ALAFENAMIDE FUMARATE
  18. EPIPEN [Concomitant]
     Active Substance: EPINEPHRINE
  19. VENLAFAXINE [Concomitant]
     Active Substance: VENLAFAXINE HYDROCHLORIDE

REACTIONS (1)
  - Blood cholesterol increased [Recovered/Resolved]
